FAERS Safety Report 9187813 (Version 1)
Quarter: 2013Q1

REPORT INFORMATION
  Report Type: Spontaneous
  Country: US (occurrence: US)
  Receive Date: 20130325
  Receipt Date: 20130325
  Transmission Date: 20140127
  Serious: No
  Sender: FDA-Public Use
  Company Number: US-MYLANLABS-2012S1010327

PATIENT
  Age: 75 Year
  Sex: Female
  Weight: 48.99 kg

DRUGS (12)
  1. FENTANYL TRANSDERMAL SYSTEM [Suspect]
     Indication: PAIN
     Dosage: Q48HR
     Route: 062
     Dates: start: 2011
  2. CYTOMEL [Concomitant]
  3. PERCOCET [Concomitant]
     Indication: BREAKTHROUGH PAIN
     Dosage: 5MG TABLET - TAKES 1/4 TABLET
  4. GABAPENTIN [Concomitant]
  5. ARMODAFINIL [Concomitant]
     Indication: FATIGUE
     Dosage: 250MG TABLET-TAKES 1/4 TABLET  FOR FATIGUE/SEDATION
  6. ATENOLOL [Concomitant]
     Indication: VENTRICULAR EXTRASYSTOLES
  7. LORAZEPAM [Concomitant]
     Dosage: 0.5MG TABLET- TAKES 1/2 TABLET
  8. CELEXA [Concomitant]
  9. ABILIFY [Concomitant]
     Dosage: 2MG TABLET-TAKES 1/4 TABLET
  10. CLONAZEPAM [Concomitant]
     Dosage: 0.5MG TABLET-TAKES 1/2 TABLET
  11. REQUIP [Concomitant]
     Dosage: 0.25MG TABLET-TAKES 1/2 TABLET
  12. AMBIEN [Concomitant]

REACTIONS (7)
  - Application site erythema [Not Recovered/Not Resolved]
  - Application site oedema [Not Recovered/Not Resolved]
  - Application site dryness [Not Recovered/Not Resolved]
  - Application site urticaria [Not Recovered/Not Resolved]
  - Application site erosion [Not Recovered/Not Resolved]
  - Hypersensitivity [Not Recovered/Not Resolved]
  - Skin irritation [Recovered/Resolved]
